FAERS Safety Report 9026579 (Version 1)
Quarter: 2012Q4

REPORT INFORMATION
  Report Type: Spontaneous
  Country: US (occurrence: None)
  Receive Date: 20121217
  Receipt Date: 20121217
  Transmission Date: 20130627
  Serious: No
  Sender: FDA-Public Use
  Company Number: None

PATIENT
  Sex: Male
  Weight: 93.44 kg

DRUGS (1)
  1. DIOVAN 80 MG [Suspect]
     Indication: BLOOD PRESSURE HIGH
     Dosage: 80 MG  1QD  ORAL
     Route: 048

REACTIONS (2)
  - Wheezing [None]
  - Chest discomfort [None]
